FAERS Safety Report 5915628-7 (Version None)
Quarter: 2008Q4

REPORT INFORMATION
  Report Type: 
  Country: None (occurrence: None)
  Receive Date: 20081010
  Receipt Date: 20081001
  Transmission Date: 20090506
  Serious: Yes (Hospitalization)
  Sender: FDA-Public Use
  Company Number: US-ELI_LILLY_AND_COMPANY-US200810000473

PATIENT
  Sex: Male
  Weight: 88.435 kg

DRUGS (9)
  1. BYETTA [Suspect]
     Indication: TYPE 2 DIABETES MELLITUS
     Dosage: 10 UG, 2/D
     Route: 058
     Dates: start: 20060401
  2. STARLIX [Concomitant]
     Indication: TYPE 2 DIABETES MELLITUS
     Dosage: UNK, UNKNOWN
     Dates: start: 20060101, end: 20080301
  3. STARLIX [Concomitant]
     Dosage: 60 MG, 3/D
     Dates: start: 20080924
  4. NOVOLIN [Concomitant]
     Indication: TYPE 2 DIABETES MELLITUS
     Dosage: 8 U, EACH EVENING
  5. NOVOLIN [Concomitant]
     Dosage: 12 U, EACH EVENING
  6. NOVOLIN [Concomitant]
     Dosage: 20 U, EACH EVENING
  7. NOVOLIN [Concomitant]
     Dosage: 30 U, EACH EVENING
  8. DAYPRO [Concomitant]
     Indication: OSTEOARTHRITIS
  9. NEURONTIN [Concomitant]
     Indication: OSTEOARTHRITIS

REACTIONS (3)
  - DRUG INEFFECTIVE [None]
  - NERVE COMPRESSION [None]
  - NEURALGIA [None]
